FAERS Safety Report 7020086-8 (Version None)
Quarter: 2010Q3

REPORT INFORMATION
  Report Type: 
  Country: None (occurrence: None)
  Receive Date: 20100929
  Receipt Date: 20100714
  Transmission Date: 20110219
  Serious: Yes (Hospitalization)
  Sender: FDA-Public Use
  Company Number: JP-SANOFI-AVENTIS-200412218JP

PATIENT
  Age: 71 Year
  Sex: Male

DRUGS (14)
  1. ARAVA [Suspect]
     Indication: RHEUMATOID ARTHRITIS
     Route: 048
     Dates: start: 20031204, end: 20031206
  2. ARAVA [Suspect]
     Route: 048
     Dates: start: 20031207, end: 20040603
  3. ARAVA [Suspect]
     Route: 048
     Dates: start: 20040623, end: 20041122
  4. PREDNISOLONE [Suspect]
     Indication: ANTIINFLAMMATORY THERAPY
     Route: 048
     Dates: start: 20031104, end: 20040603
  5. PREDNISOLONE [Suspect]
     Route: 048
     Dates: start: 20031104, end: 20040603
  6. KLARICID [Concomitant]
     Route: 048
     Dates: start: 20031104, end: 20040603
  7. KLARICID [Concomitant]
     Route: 048
     Dates: start: 20031104, end: 20040603
  8. AZULFIDINE [Concomitant]
     Indication: RHEUMATOID ARTHRITIS
     Route: 048
     Dates: start: 20031104, end: 20040603
  9. VOLTAREN [Concomitant]
     Indication: ANTIINFLAMMATORY THERAPY
     Route: 048
     Dates: start: 20031104, end: 20040603
  10. ALTAT [Concomitant]
     Indication: GASTRITIS
     Route: 048
     Dates: start: 20031104, end: 20040603
  11. CYTOTEC [Concomitant]
     Indication: GASTRITIS
     Route: 048
     Dates: start: 20031104, end: 20040603
  12. DIDRONEL ^PROCTER + GAMBLE^ [Concomitant]
     Indication: OSTEOPOROSIS
     Route: 048
     Dates: start: 20040513, end: 20040526
  13. DIDRONEL ^PROCTER + GAMBLE^ [Concomitant]
     Indication: OSTEOPOROSIS PROPHYLAXIS
     Route: 048
     Dates: start: 20040513, end: 20040526
  14. METHOTREXATE [Concomitant]
     Indication: RHEUMATOID ARTHRITIS
     Route: 048
     Dates: start: 19990401, end: 19990601

REACTIONS (1)
  - ACUTE MYOCARDIAL INFARCTION [None]
